FAERS Safety Report 8557268-X (Version None)
Quarter: 2012Q3

REPORT INFORMATION
  Report Type: 
  Country: None (occurrence: None)
  Receive Date: 20120801
  Receipt Date: 20120723
  Transmission Date: 20120928
  Serious: Yes (Hospitalization)
  Sender: FDA-Public Use
  Company Number: CA-ASTRAZENECA-2012SE51644

PATIENT
  Age: 42 Year
  Sex: Female

DRUGS (3)
  1. MARVELON 28 [Concomitant]
  2. VIMOVO [Suspect]
     Dosage: 375 MG / 20 MG, ONE EVERY DAY
     Route: 048
  3. LYRICA [Concomitant]

REACTIONS (2)
  - ANGIOEDEMA [None]
  - TINNITUS [None]
